FAERS Safety Report 7480449-3 (Version None)
Quarter: 2011Q2

REPORT INFORMATION
  Report Type: 
  Country: None (occurrence: None)
  Receive Date: 20110512
  Receipt Date: 20110512
  Transmission Date: 20111010
  Serious: Yes (Hospitalization)
  Sender: FDA-Public Use
  Company Number: None

PATIENT
  Age: 86 Year
  Sex: Male
  Weight: 82.1 kg

DRUGS (1)
  1. METHYLPREDNISOLONE [Suspect]
     Indication: EYE EXCISION
     Dosage: MG PO
     Route: 048
     Dates: start: 20110128, end: 20110204

REACTIONS (2)
  - HEADACHE [None]
  - HYPERTENSION [None]
